FAERS Safety Report 6266835-8 (Version None)
Quarter: 2009Q3

REPORT INFORMATION
  Report Type: 
  Country: None (occurrence: None)
  Receive Date: 20090714
  Receipt Date: 20080115
  Transmission Date: 20100115
  Serious: Yes (Other)
  Sender: FDA-Public Use
  Company Number: US-JNJFOC-20090703372

PATIENT
  Sex: Female
  Weight: 54.43 kg

DRUGS (1)
  1. TOPAMAX [Suspect]
     Indication: MIGRAINE PROPHYLAXIS
     Route: 048

REACTIONS (4)
  - ANAEMIA [None]
  - BREAST CANCER [None]
  - HEPATIC ENZYME INCREASED [None]
  - WHITE BLOOD CELL COUNT DECREASED [None]
